FAERS Safety Report 25856755 (Version 5)
Quarter: 2025Q4

REPORT INFORMATION
  Report Type: Spontaneous
  Country: US (occurrence: None)
  Receive Date: 20250929
  Receipt Date: 20251118
  Transmission Date: 20260118
  Serious: Yes (Hospitalization)
  Sender: CHIESI
  Company Number: US-CHIESI-2025CHF06056

PATIENT
  Age: 75 Year
  Sex: Female

DRUGS (3)
  1. MYCAPSSA [Suspect]
     Active Substance: OCTREOTIDE
     Indication: Gastrointestinal disorder
     Dosage: 2 DOSAGE FORM, BID
  2. MYCAPSSA [Suspect]
     Active Substance: OCTREOTIDE
     Indication: Off label use
  3. GLATOPA [Concomitant]
     Active Substance: GLATIRAMER ACETATE
     Indication: Product used for unknown indication
     Dosage: UNK

REACTIONS (6)
  - Ill-defined disorder [Recovering/Resolving]
  - Brain fog [Not Recovered/Not Resolved]
  - Ill-defined disorder [Recovering/Resolving]
  - Hypersensitivity [Recovering/Resolving]
  - Urinary tract infection [Recovering/Resolving]
  - Off label use [Not Recovered/Not Resolved]

NARRATIVE: CASE EVENT DATE: 20251017
